FAERS Safety Report 16998073 (Version 1)
Quarter: 2019Q4

REPORT INFORMATION
  Report Type: Spontaneous
  Country: US (occurrence: US)
  Receive Date: 20191105
  Receipt Date: 20191105
  Transmission Date: 20200122
  Serious: Yes (Other)
  Sender: FDA-Public Use
  Company Number: None

PATIENT
  Sex: Male
  Weight: 110.25 kg

DRUGS (4)
  1. FISH OIL 1200 MG [Concomitant]
  2. DETROL LA 4MG [Concomitant]
  3. ROSUVASTATIN CALCIUM 5MG. TACC TA [Suspect]
     Active Substance: ROSUVASTATIN CALCIUM
     Indication: BLOOD CHOLESTEROL INCREASED
     Dosage: ?          QUANTITY:.5 TABLET(S);?
     Route: 048
     Dates: start: 20191016, end: 20191105
  4. LISINOPRIL 5 MG [Concomitant]
     Active Substance: LISINOPRIL

REACTIONS (6)
  - Penis disorder [None]
  - Penile swelling [None]
  - Rash macular [None]
  - Hyperaesthesia [None]
  - Dysuria [None]
  - Penile pain [None]
